FAERS Safety Report 12861975 (Version 1)
Quarter: 2016Q4

REPORT INFORMATION
  Report Type: Spontaneous
  Country: AU (occurrence: AU)
  Receive Date: 20161019
  Receipt Date: 20161019
  Transmission Date: 20170207
  Serious: No
  Sender: FDA-Public Use
  Company Number: PHHY2016AU141665

PATIENT
  Age: 44 Year
  Sex: Female

DRUGS (4)
  1. NILOTINIB [Suspect]
     Active Substance: NILOTINIB
     Indication: CHRONIC MYELOID LEUKAEMIA
     Dosage: UNK UNK, QD
     Route: 065
     Dates: start: 2015
  2. NILOTINIB [Suspect]
     Active Substance: NILOTINIB
     Dosage: 2 DF, BID
     Route: 065
  3. NILOTINIB [Suspect]
     Active Substance: NILOTINIB
     Dosage: 400 MG, UNK
     Route: 065
     Dates: start: 2016
  4. NILOTINIB [Suspect]
     Active Substance: NILOTINIB
     Dosage: 150 MG, UNK
     Route: 065

REACTIONS (8)
  - Sleep disorder [Unknown]
  - Psychotic disorder [Unknown]
  - Fatigue [Unknown]
  - Sinusitis [Unknown]
  - Incorrect dose administered [Unknown]
  - Parosmia [Unknown]
  - Headache [Recovered/Resolved]
  - Delusional disorder, persecutory type [Recovered/Resolved]
